FAERS Safety Report 22659261 (Version 2)
Quarter: 2023Q4

REPORT INFORMATION
  Report Type: Spontaneous
  Country: FR (occurrence: FR)
  Receive Date: 20230630
  Receipt Date: 20231013
  Transmission Date: 20240110
  Serious: Yes (Death, Hospitalization, Other)
  Sender: FDA-Public Use
  Company Number: FR-JNJFOC-20230655646

PATIENT
  Age: 73 Year
  Sex: Male
  Weight: 91 kg

DRUGS (16)
  1. ERDAFITINIB [Suspect]
     Active Substance: ERDAFITINIB
     Indication: Transitional cell carcinoma
     Route: 048
     Dates: start: 20230526, end: 20230605
  2. ENTRESTO [Concomitant]
     Active Substance: SACUBITRIL\VALSARTAN
     Dosage: ENTRESTO 24/26 MG MORNING AND EVENING
     Route: 048
  3. LEVOTHYROXINE [Concomitant]
     Active Substance: LEVOTHYROXINE
     Route: 048
  4. ROSUVASTATIN [Concomitant]
     Active Substance: ROSUVASTATIN
     Route: 048
  5. NICOTINE [Concomitant]
     Active Substance: NICOTINE
     Dosage: ORAL BUG 15 MCG/DOSE ONE IN THE MORNING
     Route: 048
  6. NICOTINE [Concomitant]
     Active Substance: NICOTINE
     Dosage: 6 TABS/DAY
     Route: 048
  7. BISOPROLOL [Concomitant]
     Active Substance: BISOPROLOL\BISOPROLOL FUMARATE
     Dosage: BISOPROLOL 5 MG IN THE MORNING
  8. TRULICITY [Concomitant]
     Active Substance: DULAGLUTIDE
     Dosage: TRULICITY 1.5 MG THURSDAY AT 8 A.M.
  9. KARDEGIC [Concomitant]
     Active Substance: ASPIRIN DL-LYSINE
  10. EMPAGLIFLOZIN [Concomitant]
     Active Substance: EMPAGLIFLOZIN
     Dosage: 10 MG LE MATIN
  11. PANTOPRAZOLE [Concomitant]
     Active Substance: PANTOPRAZOLE
  12. SKENAN [Concomitant]
     Active Substance: MORPHINE SULFATE
  13. MORPHINE SULFATE [Concomitant]
     Active Substance: MORPHINE SULFATE
  14. NITROGLYCERIN [Concomitant]
     Active Substance: NITROGLYCERIN
     Dosage: 15MG/PULV IF NECESSARY
  15. ACETAMINOPHEN [Concomitant]
     Active Substance: ACETAMINOPHEN
     Dosage: PARACETAMOL UP TO 3 G PER DAY
  16. HALDOL [Concomitant]
     Active Substance: HALOPERIDOL
     Dosage: TRIAL OF HALDOL 5 DROPS THREE TIMES A DAY TO BE INCREASED TO 7 DROPS ON 06/02/2023

REACTIONS (4)
  - Respiratory distress [Fatal]
  - Acute myocardial infarction [Fatal]
  - Sepsis [Unknown]
  - Pulmonary embolism [Unknown]

NARRATIVE: CASE EVENT DATE: 20230101
